FAERS Safety Report 5951114-6 (Version None)
Quarter: 2008Q4

REPORT INFORMATION
  Report Type: 
  Country: None (occurrence: None)
  Receive Date: 20081112
  Receipt Date: 20081112
  Transmission Date: 20090506
  Serious: Yes (Other)
  Sender: FDA-Public Use
  Company Number: None

PATIENT
  Age: 55 Year
  Sex: Female
  Weight: 74.8435 kg

DRUGS (1)
  1. ARIMIDEX [Suspect]
     Indication: BREAST CANCER
     Dosage: 1 MG DAILY PO
     Route: 048
     Dates: start: 20070101, end: 20081111

REACTIONS (6)
  - ANGER [None]
  - ARTHRALGIA [None]
  - BONE PAIN [None]
  - ILL-DEFINED DISORDER [None]
  - LETHARGY [None]
  - MOOD SWINGS [None]
